FAERS Safety Report 17048428 (Version 1)
Quarter: 2019Q4

REPORT INFORMATION
  Report Type: Spontaneous
  Country: US (occurrence: US)
  Receive Date: 20191119
  Receipt Date: 20191119
  Transmission Date: 20200122
  Serious: No
  Sender: FDA-Public Use
  Company Number: US-AMGEN-USASP2019189664

PATIENT
  Age: 51 Year
  Sex: Female

DRUGS (1)
  1. REPATHA [Suspect]
     Active Substance: EVOLOCUMAB
     Indication: TYPE IIA HYPERLIPIDAEMIA
     Dosage: 140 MILLIGRAM
     Route: 065
     Dates: start: 201905, end: 2019

REACTIONS (5)
  - Alopecia [Unknown]
  - Back pain [Unknown]
  - Rhinorrhoea [Unknown]
  - Influenza like illness [Unknown]
  - Pruritus [Unknown]

NARRATIVE: CASE EVENT DATE: 2019
